FAERS Safety Report 20615336 (Version 7)
Quarter: 2023Q4

REPORT INFORMATION
  Report Type: Other
  Country: GB (occurrence: None)
  Receive Date: 20220321
  Receipt Date: 20231019
  Transmission Date: 20240110
  Serious: No
  Sender: FDA-Public Use
  Company Number: GB-ROCHE-3051430

PATIENT
  Age: 64 Year
  Sex: Female

DRUGS (14)
  1. OCRELIZUMAB [Suspect]
     Active Substance: OCRELIZUMAB
     Indication: Relapsing-remitting multiple sclerosis
     Route: 042
     Dates: start: 20200825, end: 20200825
  2. OCRELIZUMAB [Suspect]
     Active Substance: OCRELIZUMAB
     Route: 042
     Dates: start: 20200908, end: 20200908
  3. OCRELIZUMAB [Suspect]
     Active Substance: OCRELIZUMAB
     Route: 042
     Dates: start: 20220620, end: 20220620
  4. OCRELIZUMAB [Suspect]
     Active Substance: OCRELIZUMAB
     Route: 042
     Dates: start: 20210510, end: 20210510
  5. OCRELIZUMAB [Suspect]
     Active Substance: OCRELIZUMAB
     Route: 042
     Dates: start: 20230330, end: 20230330
  6. OCRELIZUMAB [Suspect]
     Active Substance: OCRELIZUMAB
     Route: 042
     Dates: start: 20211111, end: 20211111
  7. CHOLECALCIFEROL [Concomitant]
     Active Substance: CHOLECALCIFEROL
     Indication: Prophylaxis
     Route: 048
     Dates: start: 20200309
  8. PROPRANOLOL [Concomitant]
     Active Substance: PROPRANOLOL HYDROCHLORIDE
     Indication: Anxiety
     Route: 048
     Dates: start: 20200309
  9. GABAPENTIN [Concomitant]
     Active Substance: GABAPENTIN
     Route: 048
     Dates: start: 20200709
  10. GABAPENTIN [Concomitant]
     Active Substance: GABAPENTIN
     Route: 048
     Dates: start: 20210308
  11. SERTRALINE [Concomitant]
     Active Substance: SERTRALINE HYDROCHLORIDE
     Route: 048
     Dates: start: 20200309
  12. ESTRADIOL\NORETHINDRONE ACETATE [Concomitant]
     Active Substance: ESTRADIOL\NORETHINDRONE ACETATE
     Indication: Hormone replacement therapy
     Dates: start: 20200529
  13. MODERNA COVID-19 VACCINE [Concomitant]
     Active Substance: ELASOMERAN
     Indication: COVID-19 prophylaxis
     Route: 030
     Dates: start: 20220121, end: 20220121
  14. IBUPROFEN [Concomitant]
     Active Substance: IBUPROFEN
     Indication: Analgesic therapy
     Route: 048
     Dates: start: 20210720, end: 202207

REACTIONS (1)
  - COVID-19 [Recovered/Resolved]

NARRATIVE: CASE EVENT DATE: 20220216
